FAERS Safety Report 23638922 (Version 2)
Quarter: 2024Q3

REPORT INFORMATION
  Report Type: Spontaneous
  Country: MX (occurrence: MX)
  Receive Date: 20240315
  Receipt Date: 20240708
  Transmission Date: 20241016
  Serious: Yes (Death, Hospitalization, Other)
  Sender: MERCK
  Company Number: MX-009507513-2401MEX015788

PATIENT
  Age: 77 Year
  Sex: Female
  Weight: 71 kg

DRUGS (7)
  1. PEMBROLIZUMAB [Suspect]
     Active Substance: PEMBROLIZUMAB
     Indication: Colon cancer
     Dosage: 200 MILLIGRAM, Q3W
     Route: 042
     Dates: start: 20201202, end: 20221116
  2. PEMBROLIZUMAB [Suspect]
     Active Substance: PEMBROLIZUMAB
     Indication: Metastases to liver
     Dosage: 200 MILLIGRAM
     Route: 065
  3. PEMBROLIZUMAB [Suspect]
     Active Substance: PEMBROLIZUMAB
     Dosage: 200 MILLIGRAM, Q3W
     Route: 065
  4. PEMBROLIZUMAB [Suspect]
     Active Substance: PEMBROLIZUMAB
     Dosage: 200 MILLIGRAM, Q3W
     Route: 065
  5. OLAPARIB [Suspect]
     Active Substance: OLAPARIB
     Indication: Colon cancer
     Dosage: 600 MILLIGRAM, Q12H, STRENGTH: 150 MG
     Route: 048
     Dates: start: 20201202, end: 20221116
  6. OLAPARIB [Suspect]
     Active Substance: OLAPARIB
     Indication: Metastases to liver
     Dosage: UNK
     Route: 065
  7. OLAPARIB [Suspect]
     Active Substance: OLAPARIB
     Dosage: UNK
     Route: 048
     Dates: start: 20201202, end: 20221206

REACTIONS (3)
  - Pneumonia bacterial [Fatal]
  - Nausea [Recovered/Resolved]
  - Vomiting [Recovered/Resolved]

NARRATIVE: CASE EVENT DATE: 20201203
